FAERS Safety Report 17397136 (Version 1)
Quarter: 2020Q1

REPORT INFORMATION
  Report Type: Spontaneous
  Country: US (occurrence: US)
  Receive Date: 20200207
  Receipt Date: 20200207
  Transmission Date: 20200409
  Serious: Yes (Hospitalization)
  Sender: FDA-Public Use
  Company Number: None

PATIENT
  Age: 12 Year
  Sex: Male

DRUGS (10)
  1. CALCIUM CARBONATE. [Concomitant]
     Active Substance: CALCIUM CARBONATE
  2. PHOSPHA 250 NEUTRAL TABLETS [Concomitant]
  3. TYLENOL 325MG GEL CAPSULES [Concomitant]
  4. EPIDIOLEX [Suspect]
     Active Substance: CANNABIDIOL
     Indication: EPILEPSY
     Route: 048
     Dates: start: 20190405
  5. ONFI [Concomitant]
     Active Substance: CLOBAZAM
  6. CLARITIN [Concomitant]
     Active Substance: LORATADINE
  7. KEPPRA [Concomitant]
     Active Substance: LEVETIRACETAM
  8. CLONAZEPAM 2MG [Concomitant]
     Active Substance: CLONAZEPAM
  9. RANITIDINE 15MG/ML [Concomitant]
  10. IBUPROFEN 100MG/5ML [Concomitant]
     Active Substance: IBUPROFEN

REACTIONS (2)
  - Tonsillectomy [None]
  - Adenoidectomy [None]

NARRATIVE: CASE EVENT DATE: 20200116
